FAERS Safety Report 4467250-X (Version None)
Quarter: 2004Q4

REPORT INFORMATION
  Report Type: 
  Country: None (occurrence: None)
  Receive Date: 20041006
  Receipt Date: 20040708
  Transmission Date: 20050328
  Serious: Yes (Hospitalization, Other)
  Sender: FDA-Public Use
  Company Number: PHEH2004US07421

PATIENT
  Age: 75 Year
  Sex: Female

DRUGS (10)
  1. AREDIA [Suspect]
     Indication: METASTASES TO BONE
     Dosage: 90 MG/Q28DAYS
     Dates: start: 19970601, end: 20040601
  2. XELODA [Concomitant]
     Indication: BREAST CANCER METASTATIC
     Dosage: 1000 MG, BID
     Dates: start: 20011001
  3. FUROSEMIDE [Concomitant]
  4. POTASSIUM [Concomitant]
  5. ALDACTONE [Concomitant]
  6. OXYIR [Concomitant]
     Indication: PAIN
     Dosage: 5 MG 1-2 TABS Q3-4HRS
  7. AROMYCIN [Concomitant]
     Dosage: 2.5 MG, QD
     Dates: start: 20010801, end: 20011101
  8. OXYCONTIN [Concomitant]
     Indication: PAIN
     Dosage: 60 MG, BID
     Dates: start: 20031201
  9. DIFLUCAN [Concomitant]
     Indication: SINUSITIS
  10. ADRIAMYCIN PFS [Concomitant]
     Indication: BREAST CANCER METASTATIC
     Dosage: 20 MG, QW
     Dates: start: 20040501, end: 20040603

REACTIONS (9)
  - HALITOSIS [None]
  - IMPAIRED HEALING [None]
  - LOCALISED INFECTION [None]
  - OSTEOMYELITIS [None]
  - OSTEONECROSIS [None]
  - SINUSITIS [None]
  - SURGERY [None]
  - TOOTH ABSCESS [None]
  - TOOTH LOSS [None]
